FAERS Safety Report 4718358-2 (Version None)
Quarter: 2005Q3

REPORT INFORMATION
  Report Type: 
  Country: None (occurrence: None)
  Receive Date: 20050720
  Receipt Date: 20050706
  Transmission Date: 20060218
  Serious: Yes (Hospitalization)
  Sender: FDA-Public Use
  Company Number: FR-AMGEN-UK141226

PATIENT
  Age: 63 Year
  Sex: Male
  Weight: 71 kg

DRUGS (7)
  1. MIMPARA [Suspect]
     Indication: HYPERPARATHYROIDISM SECONDARY
     Route: 048
     Dates: start: 20050215
  2. RENAGEL [Concomitant]
     Route: 065
  3. COVERSYL [Concomitant]
     Route: 065
  4. DILTIAZEM HCL [Concomitant]
     Route: 065
  5. PLAVIX [Concomitant]
     Route: 065
  6. PARIET [Concomitant]
     Route: 065
  7. ELISOR [Concomitant]
     Route: 065

REACTIONS (3)
  - ASTHENIA [None]
  - ATRIAL FLUTTER [None]
  - PAIN IN EXTREMITY [None]
